FAERS Safety Report 8078768-5 (Version None)
Quarter: 2012Q1

REPORT INFORMATION
  Report Type: 
  Country: None (occurrence: None)
  Receive Date: 20120124
  Receipt Date: 20120109
  Transmission Date: 20120608
  Serious: Yes (Other)
  Sender: FDA-Public Use
  Company Number: 2012S1000045

PATIENT
  Age: 64 Year
  Sex: Male

DRUGS (4)
  1. LIPOFEN [Suspect]
     Dosage: 150 MG; PO
     Route: 048
     Dates: start: 20110809
  2. METHADONE HCL [Concomitant]
  3. MORPHINE SULFATE [Concomitant]
  4. LIVALO [Suspect]
     Dosage: 4MG;1X;PO    : ;1MG;1X;PO
     Route: 048
     Dates: start: 20110801, end: 20111001

REACTIONS (3)
  - ASPARTATE AMINOTRANSFERASE INCREASED [None]
  - ALANINE AMINOTRANSFERASE INCREASED [None]
  - BLOOD ALKALINE PHOSPHATASE INCREASED [None]
